FAERS Safety Report 6008661-0 (Version None)
Quarter: 2008Q4

REPORT INFORMATION
  Report Type: 
  Country: None (occurrence: None)
  Receive Date: 20081217
  Receipt Date: 20080904
  Transmission Date: 20090506
  Serious: No
  Sender: FDA-Public Use
  Company Number: US-AMGEN-KDL305943

PATIENT
  Sex: Female
  Weight: 94.9 kg

DRUGS (13)
  1. ENBREL [Suspect]
     Indication: RHEUMATOID ARTHRITIS
     Route: 058
     Dates: start: 20080703, end: 20080806
  2. LIPITOR [Concomitant]
     Dates: start: 20060615
  3. SYNTHROID [Concomitant]
     Dates: start: 20060615
  4. ADVIL LIQUI-GELS [Concomitant]
  5. NASONEX [Concomitant]
  6. NAPROSYN [Concomitant]
  7. CALCIUM WITH VITAMIN D [Concomitant]
     Dates: start: 20060615
  8. MULTI-VITAMINS [Concomitant]
     Dates: start: 20060615
  9. VICODIN [Concomitant]
  10. PREDNISONE TAB [Concomitant]
     Dates: start: 20071008
  11. METHOTREXATE [Concomitant]
     Dates: start: 20071031
  12. ACTONEL [Concomitant]
     Dates: start: 20071031
  13. FOLIC ACID [Concomitant]
     Dates: start: 20071031

REACTIONS (1)
  - PAIN [None]
